FAERS Safety Report 7123956-5 (Version None)
Quarter: 2010Q4

REPORT INFORMATION
  Report Type: 
  Country: None (occurrence: None)
  Receive Date: 20101126
  Receipt Date: 20101118
  Transmission Date: 20110411
  Serious: Yes (Hospitalization, Other)
  Sender: FDA-Public Use
  Company Number: US-PFIZER INC-2009314333

PATIENT
  Sex: Male
  Weight: 100.6 kg

DRUGS (2)
  1. DILANTIN-125 [Suspect]
     Indication: ASTROCYTOMA
     Dosage: UNK
     Route: 048
     Dates: start: 20090207, end: 20090312
  2. DILANTIN-125 [Suspect]
     Indication: CONVULSION

REACTIONS (1)
  - STEVENS-JOHNSON SYNDROME [None]
